FAERS Safety Report 6854417-6 (Version None)
Quarter: 2010Q3

REPORT INFORMATION
  Report Type: 
  Country: None (occurrence: None)
  Receive Date: 20100717
  Receipt Date: 20080104
  Transmission Date: 20110219
  Serious: Yes (Other)
  Sender: FDA-Public Use
  Company Number: US-PFIZER INC-2008002228

PATIENT
  Sex: Female
  Weight: 94.3 kg

DRUGS (5)
  1. CHANTIX [Suspect]
     Indication: SMOKING CESSATION THERAPY
     Route: 048
     Dates: start: 20071225
  2. ZOLOFT [Concomitant]
  3. TRAZODONE HYDROCHLORIDE [Concomitant]
  4. CLONIDINE [Concomitant]
  5. LOVASTATIN [Concomitant]

REACTIONS (1)
  - INSOMNIA [None]
